FAERS Safety Report 5922457-7 (Version None)
Quarter: 2008Q4

REPORT INFORMATION
  Report Type: 
  Country: None (occurrence: None)
  Receive Date: 20081017
  Receipt Date: 20081014
  Transmission Date: 20090506
  Serious: Yes (Death)
  Sender: FDA-Public Use
  Company Number: US-RB-003644-08

PATIENT
  Sex: Female
  Weight: 67.5 kg

DRUGS (5)
  1. SUBOXONE [Suspect]
     Dosage: DOSE STARTED AT 8 MG DAILY BUT GRADUALLY DECREASED TO 3 MG DAILY.
     Route: 065
     Dates: start: 20040913, end: 20070301
  2. SUBOXONE [Suspect]
     Route: 065
     Dates: start: 20070301
  3. ROZEREM [Concomitant]
     Indication: INSOMNIA
     Route: 065
  4. MIRAPEX [Concomitant]
     Route: 065
  5. PAXIL [Concomitant]
     Indication: DEPRESSION
     Route: 065

REACTIONS (1)
  - DEATH [None]
